FAERS Safety Report 17469042 (Version 1)
Quarter: 2020Q1

REPORT INFORMATION
  Report Type: Spontaneous
  Country: US (occurrence: US)
  Receive Date: 20200217
  Receipt Date: 20200217
  Transmission Date: 20200409
  Serious: Yes (Hospitalization)
  Sender: FDA-Public Use
  Company Number: None

PATIENT
  Age: 73 Year
  Sex: Female

DRUGS (9)
  1. TADALAFIL 20MG TAB [Suspect]
     Active Substance: TADALAFIL
     Indication: PULMONARY ARTERIAL HYPERTENSION
     Route: 048
     Dates: start: 20181231
  2. ADVAIR DISKU AER [Concomitant]
  3. ELIQUIS [Concomitant]
     Active Substance: APIXABAN
  4. ALBUTEROL AER HFA [Concomitant]
  5. AMIODARONE [Concomitant]
     Active Substance: AMIODARONE
  6. FUROSEMIDE. [Concomitant]
     Active Substance: FUROSEMIDE
  7. ROSUVASTATIN. [Concomitant]
     Active Substance: ROSUVASTATIN
  8. LEVOTHYROXIN [Concomitant]
     Active Substance: LEVOTHYROXINE
  9. METOPROL TAR [Concomitant]

REACTIONS (1)
  - Cardiac pacemaker insertion [None]

NARRATIVE: CASE EVENT DATE: 20200124
